FAERS Safety Report 10365707 (Version 1)
Quarter: 2014Q3

REPORT INFORMATION
  Report Type: Spontaneous
  Country: US (occurrence: None)
  Receive Date: 20140804
  Receipt Date: 20140804
  Transmission Date: 20150326
  Serious: Yes (Hospitalization, Disabling)
  Sender: FDA-Public Use
  Company Number: None

PATIENT
  Age: 23 Year
  Sex: Female
  Weight: 66.23 kg

DRUGS (2)
  1. AZITHROMYCIN [Suspect]
     Active Substance: AZITHROMYCIN ANHYDROUS
     Indication: EAR INFECTION
     Dosage: 6 TABLETS  ONCE DAILY TAKEN BY MOUTH
     Route: 048
     Dates: start: 20140725, end: 20140730
  2. AZITHROMYCIN [Suspect]
     Active Substance: AZITHROMYCIN ANHYDROUS
     Indication: SINUSITIS
     Dosage: 6 TABLETS  ONCE DAILY TAKEN BY MOUTH
     Route: 048
     Dates: start: 20140725, end: 20140730

REACTIONS (8)
  - Nausea [None]
  - Condition aggravated [None]
  - Palpitations [None]
  - Dyspnoea [None]
  - Abdominal pain upper [None]
  - Vomiting [None]
  - Anxiety [None]
  - Malaise [None]

NARRATIVE: CASE EVENT DATE: 20140802
